FAERS Safety Report 25828757 (Version 1)
Quarter: 2025Q3

REPORT INFORMATION
  Report Type: Spontaneous
  Country: TH (occurrence: TH)
  Receive Date: 20250922
  Receipt Date: 20250922
  Transmission Date: 20251020
  Serious: Yes (Other)
  Sender: MERCK SHARP & DOHME LLC
  Company Number: TH-009507513-2010154

PATIENT
  Age: 73 Year
  Sex: Male

DRUGS (3)
  1. KEYTRUDA [Suspect]
     Active Substance: PEMBROLIZUMAB
     Indication: Squamous cell carcinoma of head and neck
     Dosage: DOSE DESCRIPTION : 200 MILLIGRAM, Q3W, CYCLE 1?DAILY DOSE : 9.4 MILLIGRAM?CONCENTRATION: 100 MILL...
     Route: 042
     Dates: start: 20240716, end: 20240716
  2. KEYTRUDA [Suspect]
     Active Substance: PEMBROLIZUMAB
     Indication: Squamous cell carcinoma of head and neck
     Dosage: DOSE DESCRIPTION : 200 MILLIGRAM, Q3W, CYCLE 2?DAILY DOSE : 9.4 MILLIGRAM?REGIMEN DOSE : 200  MIL...
     Route: 042
     Dates: start: 20240815, end: 20240815
  3. KEYTRUDA [Suspect]
     Active Substance: PEMBROLIZUMAB
     Indication: Squamous cell carcinoma of head and neck
     Dosage: DOSE DESCRIPTION : 200 MILLIGRAM, Q3W, CYCLE 3?DAILY DOSE : 9.4 MILLIGRAM?REGIMEN DOSE : 200  MIL...
     Route: 042
     Dates: start: 20241011, end: 20241011

REACTIONS (3)
  - Tuberculosis [Unknown]
  - Inappropriate schedule of product administration [Unknown]
  - Inappropriate schedule of product administration [Unknown]

NARRATIVE: CASE EVENT DATE: 20240815
